FAERS Safety Report 7709307-3 (Version None)
Quarter: 2011Q3

REPORT INFORMATION
  Report Type: 
  Country: None (occurrence: None)
  Receive Date: 20110825
  Receipt Date: 20110727
  Transmission Date: 20111222
  Serious: No
  Sender: FDA-Public Use
  Company Number: US-TYCO HEALTHCARE/MALLINCKRODT-T201101134

PATIENT
  Sex: Female
  Weight: 63.492 kg

DRUGS (11)
  1. PERCOCET [Concomitant]
     Indication: PAIN
  2. REGLAN [Concomitant]
  3. HYDROCHLOROTHIAZIDE [Concomitant]
     Indication: FLUID RETENTION
  4. FENTANYL-100 [Suspect]
     Dosage: 50 UG/HR, ONE EVERY 2 DAYS
     Route: 062
     Dates: start: 20110515, end: 20110519
  5. FENTANYL-100 [Suspect]
     Indication: CANCER PAIN
     Dosage: 100 UG/HR ONE EVERY 2 DAYS
     Route: 062
     Dates: start: 20110515, end: 20110519
  6. OXYCODONE HCL [Concomitant]
     Indication: BREAKTHROUGH PAIN
  7. ZOLOFT [Concomitant]
     Indication: DEPRESSION
  8. NAPROXEN (ALEVE) [Concomitant]
     Indication: INFLAMMATION
  9. COMPAZINE [Concomitant]
     Indication: NAUSEA
  10. LACTULOSE [Concomitant]
     Indication: CONSTIPATION
  11. ATIVAN [Concomitant]
     Indication: ANXIETY

REACTIONS (1)
  - DRUG INEFFECTIVE [None]
